FAERS Safety Report 7544216-4 (Version None)
Quarter: 2011Q2

REPORT INFORMATION
  Report Type: 
  Country: None (occurrence: None)
  Receive Date: 20110613
  Receipt Date: 20061023
  Transmission Date: 20111010
  Serious: Yes (Hospitalization)
  Sender: FDA-Public Use
  Company Number: PHHO2005JP17149

PATIENT
  Sex: Female
  Weight: 65 kg

DRUGS (6)
  1. HUMACART-N [Concomitant]
     Indication: DIABETES MELLITUS
     Dates: start: 20031129
  2. TANATRIL [Concomitant]
     Indication: HYPERTENSION
     Dates: end: 20031128
  3. METFORMIN HCL [Concomitant]
     Indication: DIABETES MELLITUS
     Dates: start: 20021105
  4. HUMALOG [Concomitant]
     Indication: DIABETES MELLITUS
     Dates: start: 20031129
  5. DIOVAN [Suspect]
     Indication: HYPERTENSION
     Dosage: 80 MG, QD
     Route: 048
     Dates: start: 20021105
  6. GLYBURIDE [Concomitant]
     Indication: DIABETES MELLITUS
     Dates: start: 20021105, end: 20031128

REACTIONS (6)
  - DIABETES MELLITUS INADEQUATE CONTROL [None]
  - METASTASES TO LIVER [None]
  - ANAEMIA [None]
  - LARGE INTESTINE CARCINOMA [None]
  - CARCINOEMBRYONIC ANTIGEN INCREASED [None]
  - HYPERGLYCAEMIA [None]
